FAERS Safety Report 10515500 (Version 1)
Quarter: 2014Q4

REPORT INFORMATION
  Report Type: Spontaneous
  Country: DE (occurrence: DE)
  Receive Date: 20141014
  Receipt Date: 20141014
  Transmission Date: 20150528
  Serious: No
  Sender: FDA-Public Use
  Company Number: DE-ELI_LILLY_AND_COMPANY-DE201410001983

PATIENT
  Age: 73 Year
  Sex: Male

DRUGS (2)
  1. SELECTOL [Concomitant]
     Active Substance: CELIPROLOL
  2. CIALIS [Suspect]
     Active Substance: TADALAFIL
     Indication: BENIGN PROSTATIC HYPERPLASIA
     Dosage: 5 MG, UNKNOWN
     Route: 048
     Dates: start: 201210

REACTIONS (4)
  - Gastrointestinal disorder [Not Recovered/Not Resolved]
  - Vision blurred [Not Recovered/Not Resolved]
  - Wrong technique in drug usage process [Unknown]
  - Abdominal pain upper [Not Recovered/Not Resolved]
